FAERS Safety Report 19069441 (Version 2)
Quarter: 2021Q2

REPORT INFORMATION
  Report Type: Report from Study
  Country: GB (occurrence: GB)
  Receive Date: 20210329
  Receipt Date: 20210528
  Transmission Date: 20210717
  Serious: Yes (Hospitalization)
  Sender: FDA-Public Use
  Company Number: GB-TAKEDA-GB201606690

PATIENT
  Age: 60 Year
  Sex: Male

DRUGS (5)
  1. AMLODIPINE [Concomitant]
     Active Substance: AMLODIPINE BESYLATE
     Dosage: UNK
     Route: 065
  2. ICATIBANT [Suspect]
     Active Substance: ICATIBANT ACETATE
     Indication: IDIOPATHIC ANGIOEDEMA
     Dosage: 30 MG, AS REQ^D
     Dates: start: 20121025
  3. CETIRIZINE [Concomitant]
     Active Substance: CETIRIZINE HYDROCHLORIDE
     Dosage: UNK
     Route: 065
  4. ICATIBANT [Suspect]
     Active Substance: ICATIBANT ACETATE
     Indication: IDIOPATHIC ANGIOEDEMA
     Dosage: 30 MG, AS REQ^D
     Dates: start: 20121025
  5. TRANEXAMIC ACID. [Concomitant]
     Active Substance: TRANEXAMIC ACID
     Dosage: UNK
     Route: 065

REACTIONS (2)
  - Osteoarthritis [Recovered/Resolved]
  - Product use in unapproved indication [Not Recovered/Not Resolved]

NARRATIVE: CASE EVENT DATE: 20121025
